FAERS Safety Report 8442757-9 (Version None)
Quarter: 2012Q2

REPORT INFORMATION
  Report Type: 
  Country: None (occurrence: None)
  Receive Date: 20120615
  Receipt Date: 20120405
  Transmission Date: 20120825
  Serious: Yes (Other)
  Sender: FDA-Public Use
  Company Number: CA-FRI-1000031355

PATIENT
  Age: 63 Year
  Sex: Female

DRUGS (7)
  1. PERINDOPRIL ERBUMINE [Concomitant]
  2. NEXIUM [Concomitant]
     Dosage: 40 MG
  3. CALCIUM [Concomitant]
  4. LOVAZA [Concomitant]
  5. TIAZAC [Suspect]
     Dosage: 360 MG
     Route: 048
  6. VITAMIN D [Concomitant]
  7. ASCORBIC ACID [Concomitant]

REACTIONS (1)
  - HEART RATE IRREGULAR [None]
